FAERS Safety Report 7795456-0 (Version None)
Quarter: 2011Q4

REPORT INFORMATION
  Report Type: 
  Country: None (occurrence: None)
  Receive Date: 20111004
  Receipt Date: 20110928
  Transmission Date: 20120403
  Serious: Yes (Death, Hospitalization)
  Sender: FDA-Public Use
  Company Number: US-ACTELION-A-NJ2011-51786

PATIENT

DRUGS (5)
  1. TRACLEER [Suspect]
     Indication: PULMONARY ARTERIAL HYPERTENSION
     Dosage: UNK
     Route: 048
     Dates: start: 20100322
  2. REVATIO [Concomitant]
  3. CALCIUM CHANNEL BLOCKERS [Concomitant]
  4. COUMADIN [Concomitant]
  5. VENTAVIS [Suspect]
     Indication: PULMONARY ARTERIAL HYPERTENSION
     Dosage: UNK
     Route: 055
     Dates: start: 20101019

REACTIONS (4)
  - CHRONIC OBSTRUCTIVE PULMONARY DISEASE [None]
  - CARDIAC FAILURE CONGESTIVE [None]
  - FLUID RETENTION [None]
  - DEATH [None]
